FAERS Safety Report 6667038-5 (Version None)
Quarter: 2010Q2

REPORT INFORMATION
  Report Type: 
  Country: None (occurrence: None)
  Receive Date: 20100401
  Receipt Date: 20100317
  Transmission Date: 20101027
  Serious: Yes (Death, Hospitalization)
  Sender: FDA-Public Use
  Company Number: 2010000799

PATIENT
  Age: 69 Year
  Sex: Female

DRUGS (2)
  1. ERLOTINIB (ERLOTINIB) (TABLET) (ERLOTINIB) [Suspect]
     Indication: NON-SMALL CELL LUNG CANCER
     Dosage: (150 MG, QD), ORAL
     Route: 048
     Dates: start: 20090727, end: 20100207
  2. 5-AZACYTIDINE (AZACITIDINE) [Suspect]
     Indication: NON-SMALL CELL LUNG CANCER
     Dosage: 110 MG, DAY 1-4 AND DAY 15-18, SUBCUTANEOUS
     Route: 058
     Dates: start: 20090727, end: 20100204

REACTIONS (24)
  - ACQUIRED DIAPHRAGMATIC EVENTRATION [None]
  - ATRIAL FIBRILLATION [None]
  - BLOOD AMYLASE INCREASED [None]
  - BLOOD PH DECREASED [None]
  - BRONCHIAL OBSTRUCTION [None]
  - COLLAPSE OF LUNG [None]
  - DEEP VEIN THROMBOSIS [None]
  - FALL [None]
  - HAEMATOCRIT DECREASED [None]
  - HAEMOGLOBIN DECREASED [None]
  - HAEMOPTYSIS [None]
  - INTERNATIONAL NORMALISED RATIO INCREASED [None]
  - LIPASE INCREASED [None]
  - MALIGNANT NEOPLASM PROGRESSION [None]
  - MEDIASTINAL SHIFT [None]
  - NON-SMALL CELL LUNG CANCER [None]
  - PCO2 INCREASED [None]
  - PLEURAL EFFUSION [None]
  - PO2 INCREASED [None]
  - PULMONARY EMBOLISM [None]
  - PULMONARY HILUM MASS [None]
  - RESPIRATORY FAILURE [None]
  - SYNCOPE [None]
  - TRANSIENT ISCHAEMIC ATTACK [None]
